FAERS Safety Report 5961621-8 (Version None)
Quarter: 2008Q4

REPORT INFORMATION
  Report Type: 
  Country: None (occurrence: None)
  Receive Date: 20081121
  Receipt Date: 20081110
  Transmission Date: 20090506
  Serious: Yes (Hospitalization)
  Sender: FDA-Public Use
  Company Number: US-WATSON-2008-06638

PATIENT
  Age: 58 Year
  Sex: Female

DRUGS (4)
  1. ETOPOSIDE [Suspect]
     Indication: NON-HODGKIN'S LYMPHOMA
     Dosage: 930 MG, DAILY
     Route: 042
  2. CARMUSTINE [Suspect]
     Indication: NON-HODGKIN'S LYMPHOMA
     Dosage: 225 MG, DAILY
     Route: 042
  3. CYCLOPHOSPHAMIDE [Suspect]
     Indication: NON-HODGKIN'S LYMPHOMA
     Dosage: 2.295 G, DAILY
     Route: 042
  4. MESNA [Concomitant]
     Indication: NON-HODGKIN'S LYMPHOMA
     Dosage: 1.377 G, DAILY
     Route: 042

REACTIONS (1)
  - CARDIAC FAILURE CONGESTIVE [None]
